FAERS Safety Report 5284053-7 (Version None)
Quarter: 2007Q1

REPORT INFORMATION
  Report Type: 
  Country: None (occurrence: None)
  Receive Date: 20070327
  Receipt Date: 20070312
  Transmission Date: 20070707
  Serious: Yes (Disabling)
  Sender: FDA-Public Use
  Company Number: 8017561

PATIENT
  Sex: Female

DRUGS (9)
  1. KEPPRA [Suspect]
     Indication: EPILEPSY
     Dosage: 2500 MG /D PO
     Route: 048
     Dates: end: 20060611
  2. KEPPRA [Suspect]
     Indication: EPILEPSY
     Dosage: 1500 MG 2/D PO
     Route: 048
     Dates: start: 20060612, end: 20060619
  3. KEPPRA [Suspect]
     Indication: EPILEPSY
     Dosage: 2750 MG /D PO
     Route: 048
     Dates: start: 20060620
  4. ERGENYL CHRONO [Concomitant]
  5. VALPROATE CHRONO [Concomitant]
  6. TOPIRAMATE [Concomitant]
  7. DOCITON [Concomitant]
  8. ENALAPRIL MALEATE [Concomitant]
  9. HUMINSULIN NORMAL [Concomitant]

REACTIONS (4)
  - BLOOD GLUCOSE INCREASED [None]
  - GRAND MAL CONVULSION [None]
  - HALLUCINATION, VISUAL [None]
  - VISUAL DISTURBANCE [None]
